FAERS Safety Report 10905903 (Version 1)
Quarter: 2015Q1

REPORT INFORMATION
  Report Type: Spontaneous
  Country: US (occurrence: US)
  Receive Date: 20150311
  Receipt Date: 20150311
  Transmission Date: 20150721
  Serious: Yes (Hospitalization, Other)
  Sender: FDA-Public Use
  Company Number: US-ACTAVIS-2015-04537

PATIENT
  Age: 2 Week
  Sex: Female

DRUGS (2)
  1. METHYLDOPA (WATSON LABORATORIES) [Suspect]
     Active Substance: METHYLDOPA
     Indication: GESTATIONAL HYPERTENSION
     Dosage: 500 MG, BID
     Route: 064
  2. METHYLDOPA (WATSON LABORATORIES) [Suspect]
     Active Substance: METHYLDOPA
     Dosage: 500 MG, TID
     Route: 064

REACTIONS (9)
  - Hypertensive crisis [Recovered/Resolved]
  - Foetal exposure during pregnancy [Unknown]
  - Drug withdrawal syndrome [Recovered/Resolved]
  - Neonatal respiratory distress syndrome [Recovered/Resolved]
  - Small for dates baby [Unknown]
  - Atrial septal defect [Unknown]
  - Patent ductus arteriosus [Unknown]
  - Tachycardia [Unknown]
  - Cardiac failure acute [Recovered/Resolved]
